FAERS Safety Report 21648955 (Version 2)
Quarter: 2022Q4

REPORT INFORMATION
  Report Type: Spontaneous
  Country: TR (occurrence: TR)
  Receive Date: 20221128
  Receipt Date: 20221207
  Transmission Date: 20230113
  Serious: Yes (Other)
  Sender: FDA-Public Use
  Company Number: TR-002147023-NVSC2022TR265128

PATIENT
  Age: 14 Year
  Sex: Female

DRUGS (1)
  1. ILARIS [Suspect]
     Active Substance: CANAKINUMAB
     Indication: Brucellosis
     Dosage: UNK, QMO
     Route: 065

REACTIONS (7)
  - Product supply issue [Unknown]
  - Haematological infection [Unknown]
  - Pyrexia [Unknown]
  - Abdominal pain upper [Unknown]
  - Arthralgia [Unknown]
  - Nausea [Unknown]
  - Off label use [Unknown]
